FAERS Safety Report 7240083-7 (Version None)
Quarter: 2011Q1

REPORT INFORMATION
  Report Type: 
  Country: None (occurrence: None)
  Receive Date: 20110119
  Receipt Date: 20110119
  Transmission Date: 20110831
  Serious: Yes (Hospitalization)
  Sender: FDA-Public Use
  Company Number: None

PATIENT
  Age: 55 Year
  Sex: Female
  Weight: 74.8435 kg

DRUGS (2)
  1. IMIPRAMINE [Suspect]
     Indication: DEPRESSION
     Dosage: 100 MG DAILY PO
     Route: 048
     Dates: start: 20101014, end: 20110110
  2. IMIPRAMINE [Suspect]
     Indication: ANXIETY
     Dosage: 100 MG DAILY PO
     Route: 048
     Dates: start: 20101014, end: 20110110

REACTIONS (2)
  - ANXIETY [None]
  - PALPITATIONS [None]
